FAERS Safety Report 18220389 (Version 1)
Quarter: 2020Q3

REPORT INFORMATION
  Report Type: Spontaneous
  Country: US (occurrence: US)
  Receive Date: 20200902
  Receipt Date: 20200902
  Transmission Date: 20201103
  Serious: No
  Sender: FDA-Public Use
  Company Number: US-ELI_LILLY_AND_COMPANY-US202008010607

PATIENT
  Sex: Female

DRUGS (2)
  1. FORTEO [Suspect]
     Active Substance: TERIPARATIDE
     Indication: BACK PAIN
     Dosage: UNK UNK, UNKNOWN
     Route: 065
  2. FORTEO [Suspect]
     Active Substance: TERIPARATIDE
     Indication: BACK PAIN
     Dosage: UNK UNK, UNKNOWN
     Route: 065

REACTIONS (4)
  - Nervousness [Unknown]
  - Injection site erythema [Unknown]
  - Product dose omission issue [Unknown]
  - Off label use [Unknown]
